FAERS Safety Report 10381567 (Version 1)
Quarter: 2014Q3

REPORT INFORMATION
  Report Type: Spontaneous
  Country: CH (occurrence: CH)
  Receive Date: 20140813
  Receipt Date: 20140813
  Transmission Date: 20150326
  Serious: Yes (Other)
  Sender: FDA-Public Use
  Company Number: CH-ACTAVIS-2014-17296

PATIENT
  Age: 51 Year
  Sex: Male

DRUGS (7)
  1. RITONAVIR [Suspect]
     Active Substance: RITONAVIR
     Indication: HIV INFECTION CDC CATEGORY C3
     Dosage: 100 MG, DAILY
     Route: 065
  2. ATAZANAVIR [Concomitant]
     Active Substance: ATAZANAVIR
     Indication: HIV INFECTION CDC CATEGORY C3
     Dosage: 300 MG, DAILY
     Route: 065
  3. FLUTICASONE [Suspect]
     Active Substance: FLUTICASONE\FLUTICASONE PROPIONATE
     Indication: DYSPNOEA
     Dosage: UNK
     Route: 055
  4. DIDANOSINE. [Concomitant]
     Active Substance: DIDANOSINE
     Indication: HIV INFECTION CDC CATEGORY C3
     Dosage: 400 MG, DAILY
     Route: 065
  5. ETRAVIRINE [Concomitant]
     Active Substance: ETRAVIRINE
     Indication: HIV INFECTION CDC CATEGORY C3
     Dosage: 400 MG, DAILY
     Route: 065
  6. TRIAMCINOLONE ACETONIDE (AMALLC) [Suspect]
     Active Substance: TRIAMCINOLONE ACETONIDE
     Indication: EPICONDYLITIS
     Dosage: TWO INJECTIONS OF 40 MG IN EACH ELBOW
     Route: 052
  7. CLOBETASOL (UNKNOWN) [Suspect]
     Active Substance: CLOBETASOL
     Indication: RASH
     Dosage: UNK
     Route: 061

REACTIONS (5)
  - Deep vein thrombosis [Unknown]
  - Pulmonary embolism [Unknown]
  - Cushing^s syndrome [Recovered/Resolved]
  - Drug interaction [Unknown]
  - Deep vein thrombosis [None]
